FAERS Safety Report 4633924-0 (Version None)
Quarter: 2005Q2

REPORT INFORMATION
  Report Type: 
  Country: None (occurrence: None)
  Receive Date: 20050407
  Receipt Date: 20050331
  Transmission Date: 20051028
  Serious: Yes (Life-Threatening)
  Sender: FDA-Public Use
  Company Number: 05P-144-0295947-00

PATIENT
  Age: 41 Year
  Sex: Female

DRUGS (4)
  1. NORVIR [Suspect]
     Indication: HIV INFECTION
     Dosage: 100 MG, 2 IN 1 D, PER ORAL
     Route: 048
     Dates: start: 20050110, end: 20050120
  2. FOSAMPRENAVIR [Concomitant]
  3. DIDANOSINE [Concomitant]
  4. TENOFOVIR [Concomitant]

REACTIONS (2)
  - ANGIONEUROTIC OEDEMA [None]
  - RASH [None]
